FAERS Safety Report 8324775-4 (Version None)
Quarter: 2012Q2

REPORT INFORMATION
  Report Type: 
  Country: None (occurrence: None)
  Receive Date: 20120501
  Receipt Date: 20120425
  Transmission Date: 20120825
  Serious: Yes (Hospitalization)
  Sender: FDA-Public Use
  Company Number: PHHY2012TR026235

PATIENT
  Age: 95 Year
  Sex: Female

DRUGS (3)
  1. ANTIHYPERTENSIVES [Concomitant]
  2. ORAL ANTIDIABETICS [Concomitant]
  3. ZOLEDRONOC ACID [Suspect]
     Route: 042

REACTIONS (5)
  - MYALGIA [None]
  - GENERAL PHYSICAL HEALTH DETERIORATION [None]
  - PYREXIA [None]
  - VOMITING [None]
  - NAUSEA [None]
